FAERS Safety Report 8704840 (Version 2)
Quarter: 2012Q4

REPORT INFORMATION
  Report Type: 
  Country: FR (occurrence: FR)
  Receive Date: 20120803
  Receipt Date: 20120912
  Transmission Date: 20130627
  Serious: Yes (Hospitalization, Other)
  Sender: FDA-Public Use
  Company Number: FR-TEVA-350057ISR

PATIENT
  Age: 76 Year
  Sex: Female

DRUGS (2)
  1. CARBOPLATINE [Suspect]
     Indication: SMALL CELL LUNG CANCER EXTENSIVE STAGE
     Route: 042
     Dates: start: 20120529, end: 20120710
  2. ALIMTA [Suspect]
     Indication: SMALL CELL LUNG CANCER EXTENSIVE STAGE
     Route: 042
     Dates: start: 20120529, end: 20120710

REACTIONS (11)
  - Convulsion [Recovered/Resolved]
  - Hypotension [Recovered/Resolved]
  - Injection related reaction [Recovered/Resolved]
  - Vomiting [Recovered/Resolved]
  - Oxygen saturation decreased [Recovered/Resolved]
  - Hypersensitivity [Recovered/Resolved]
  - Postictal state [Recovered/Resolved]
  - Urinary incontinence [Recovered/Resolved]
  - Chills [Recovered/Resolved]
  - Metastases to central nervous system [Recovered/Resolved]
  - Hot flush [Recovered/Resolved]
